FAERS Safety Report 8328230-7 (Version None)
Quarter: 2012Q2

REPORT INFORMATION
  Report Type: 
  Country: None (occurrence: None)
  Receive Date: 20120502
  Receipt Date: 20120424
  Transmission Date: 20120825
  Serious: Yes (Other)
  Sender: FDA-Public Use
  Company Number: NL-BAYER-2012-039670

PATIENT
  Age: 55 Year
  Sex: Female
  Weight: 65 kg

DRUGS (1)
  1. NAPROXEN (ALEVE) [Suspect]
     Indication: PAIN
     Dosage: 220 MG, UNK
     Dates: start: 20120221, end: 20120221

REACTIONS (1)
  - CIRCULATORY COLLAPSE [None]
